FAERS Safety Report 5453961-6 (Version None)
Quarter: 2007Q3

REPORT INFORMATION
  Report Type: 
  Country: None (occurrence: None)
  Receive Date: 20070917
  Receipt Date: 20060731
  Transmission Date: 20080115
  Serious: No
  Sender: FDA-Public Use
  Company Number: US-ASTRAZENECA-2005UW19494

PATIENT
  Age: 38 Year
  Sex: Female
  Weight: 73.5 kg

DRUGS (7)
  1. SEROQUEL [Suspect]
     Indication: SLEEP DISORDER
     Route: 048
     Dates: start: 20041201, end: 20060201
  2. SEROQUEL [Suspect]
     Indication: BIPOLAR DISORDER
     Route: 048
     Dates: start: 20041201, end: 20060201
  3. SEROQUEL [Suspect]
     Indication: SCHIZOAFFECTIVE DISORDER
     Route: 048
     Dates: start: 20041201, end: 20060201
  4. SEROQUEL [Suspect]
     Route: 048
     Dates: start: 20041201
  5. SEROQUEL [Suspect]
     Route: 048
     Dates: start: 20041201
  6. SEROQUEL [Suspect]
     Route: 048
     Dates: start: 20041201
  7. HYDROXYZINE [Concomitant]

REACTIONS (3)
  - DRUG EXPOSURE DURING PREGNANCY [None]
  - HYPERCHOLESTEROLAEMIA [None]
  - HYPOTHYROIDISM [None]
